FAERS Safety Report 9463120 (Version 1)
Quarter: 2013Q3

REPORT INFORMATION
  Report Type: Spontaneous
  Country: US (occurrence: US)
  Receive Date: 20130816
  Receipt Date: 20130816
  Transmission Date: 20140515
  Serious: Yes (Hospitalization)
  Sender: FDA-Public Use
  Company Number: US-B.I. PHARMACEUTICALS,INC./RIDGEFIELD-2013-BI-24881BP

PATIENT
  Sex: Female
  Weight: 49 kg

DRUGS (9)
  1. PRADAXA [Suspect]
     Indication: ATRIAL FIBRILLATION
     Dosage: 300 MG
     Route: 048
     Dates: start: 2011, end: 20130806
  2. PRADAXA [Suspect]
     Dosage: 300 MG
     Route: 048
     Dates: start: 20130808
  3. LEVOTHYROXINE [Concomitant]
     Indication: HYPOTHYROIDISM
     Dosage: 0.05 MG
     Route: 048
     Dates: start: 2007
  4. CLONIDINE [Concomitant]
     Indication: HYPERTENSION
     Dosage: 0.2 MG
     Route: 048
     Dates: start: 2004
  5. CHLORTHALIDONE [Concomitant]
     Indication: HYPERTENSION
     Dosage: 25 MG
     Route: 048
     Dates: start: 2012
  6. CRESTOR [Concomitant]
     Indication: BLOOD CHOLESTEROL INCREASED
     Dosage: 10 MG
     Route: 048
     Dates: start: 2012
  7. POTASSIUM [Concomitant]
     Indication: BLOOD POTASSIUM DECREASED
     Dosage: 20 MEQ
     Route: 048
     Dates: start: 2008
  8. DIGOXIN [Concomitant]
     Indication: ATRIAL FIBRILLATION
     Dosage: 0.125 MG
     Route: 048
     Dates: start: 2002
  9. DILTIAZEM [Concomitant]
     Indication: ATRIAL FIBRILLATION
     Dosage: 180 MG
     Route: 048
     Dates: start: 2008

REACTIONS (3)
  - Device occlusion [Recovered/Resolved]
  - Intermittent claudication [Recovered/Resolved]
  - Intermittent claudication [Recovered/Resolved]
